FAERS Safety Report 25311428 (Version 2)
Quarter: 2025Q2

REPORT INFORMATION
  Report Type: Report from Study
  Country: US (occurrence: US)
  Receive Date: 20250514
  Receipt Date: 20250520
  Transmission Date: 20250716
  Serious: Yes (Other)
  Sender: TAKEDA
  Company Number: US-TAKEDA-2024TUS122102

PATIENT
  Age: 72 Year
  Sex: Male
  Weight: 77 kg

DRUGS (5)
  1. VEDOLIZUMAB [Suspect]
     Active Substance: VEDOLIZUMAB
     Indication: Crohn^s disease
     Dosage: 108 MILLIGRAM, Q2WEEKS
     Dates: start: 20241204
  2. VEDOLIZUMAB [Suspect]
     Active Substance: VEDOLIZUMAB
  3. VEDOLIZUMAB [Suspect]
     Active Substance: VEDOLIZUMAB
     Indication: Crohn^s disease
  4. DEXILANT [Suspect]
     Active Substance: DEXLANSOPRAZOLE
     Indication: Product used for unknown indication
  5. EOHILIA [Suspect]
     Active Substance: BUDESONIDE
     Indication: Product used for unknown indication

REACTIONS (6)
  - Basal cell carcinoma [Recovered/Resolved]
  - Squamous cell carcinoma [Recovered/Resolved]
  - Injection site pain [Recovered/Resolved]
  - Infusion site bruising [Recovered/Resolved]
  - Injection site haemorrhage [Recovered/Resolved]
  - Inappropriate schedule of product administration [Unknown]

NARRATIVE: CASE EVENT DATE: 20241204
